FAERS Safety Report 19630352 (Version 2)
Quarter: 2021Q4

REPORT INFORMATION
  Report Type: Spontaneous
  Country: US (occurrence: US)
  Receive Date: 20210728
  Receipt Date: 20211029
  Transmission Date: 20220303
  Serious: Yes (Other)
  Sender: FDA-Public Use
  Company Number: US-SA-SAC20210722000850

PATIENT
  Sex: Female

DRUGS (1)
  1. LEMTRADA [Suspect]
     Active Substance: ALEMTUZUMAB
     Route: 042

REACTIONS (10)
  - Basedow^s disease [Unknown]
  - Hot flush [Unknown]
  - Osteopenia [Unknown]
  - Osteoporosis [Unknown]
  - Hyperhidrosis [Unknown]
  - Feeling hot [Unknown]
  - Thyroid disorder [Unknown]
  - Herpes zoster [Unknown]
  - Chest pain [Unknown]
  - Unevaluable event [Unknown]

NARRATIVE: CASE EVENT DATE: 20210901
